FAERS Safety Report 7551236-2 (Version None)
Quarter: 2011Q2

REPORT INFORMATION
  Report Type: 
  Country: None (occurrence: None)
  Receive Date: 20110616
  Receipt Date: 20110609
  Transmission Date: 20111010
  Serious: Yes (Other)
  Sender: FDA-Public Use
  Company Number: PHFR2011GB00890

PATIENT
  Sex: Female

DRUGS (2)
  1. ESTRADIOL VALERATE [Suspect]
     Dosage: 2 MG, DAILY
  2. ESTRADIOL VALERATE [Suspect]
     Dosage: UNK
     Route: 065

REACTIONS (3)
  - THERAPEUTIC RESPONSE DECREASED [None]
  - INSULIN RESISTANCE [None]
  - HOT FLUSH [None]
